FAERS Safety Report 9680931 (Version 1)
Quarter: 2013Q4

REPORT INFORMATION
  Report Type: Spontaneous
  Country: CH (occurrence: CH)
  Receive Date: 20131111
  Receipt Date: 20131111
  Transmission Date: 20140711
  Serious: Yes (Hospitalization)
  Sender: FDA-Public Use
  Company Number: CH-SA-2013SA112410

PATIENT
  Age: 52 Year
  Sex: Male

DRUGS (11)
  1. PLAVIX [Suspect]
     Indication: PRODUCT USED FOR UNKNOWN INDICATION
     Route: 048
     Dates: end: 201307
  2. BACTRIM FORTE [Suspect]
     Indication: PRODUCT USED FOR UNKNOWN INDICATION
     Dosage: FORM: COATED TABLETS, FILM
     Route: 048
     Dates: start: 201307, end: 201307
  3. NEBILET [Suspect]
     Indication: PRODUCT USED FOR UNKNOWN INDICATION
     Route: 048
     Dates: end: 201307
  4. ESOMEPRAZOLE MAGNESIUM [Suspect]
     Indication: PRODUCT USED FOR UNKNOWN INDICATION
     Dosage: FORM: COATED TABLETS, OTHER
     Route: 048
     Dates: end: 201307
  5. ASPIRIN CARDIO [Suspect]
     Indication: PRODUCT USED FOR UNKNOWN INDICATION
     Dosage: FORM: COATED TABLETS, FILM
     Route: 048
     Dates: end: 201307
  6. MYFORTIC [Concomitant]
     Dosage: STRENGTH: 384.8 MG
     Route: 048
     Dates: start: 201307
  7. MYFORTIC [Concomitant]
     Dosage: STRENGTH: 384.8 MG
     Route: 048
  8. PROGRAF [Concomitant]
     Dosage: STRENGTH: 0.5 MG
     Route: 048
  9. VALCYTE [Concomitant]
     Route: 048
     Dates: start: 201307, end: 201307
  10. VALCYTE [Concomitant]
     Route: 048
     Dates: start: 20130808
  11. ATARAX [Concomitant]
     Dosage: LONG TERM?STRENGTH: 25 MG
     Route: 048

REACTIONS (4)
  - Drug reaction with eosinophilia and systemic symptoms [Recovered/Resolved]
  - Rash [Recovered/Resolved]
  - Pyrexia [Recovered/Resolved]
  - Eosinophilia [Recovered/Resolved]
